FAERS Safety Report 13773129 (Version 1)
Quarter: 2017Q3

REPORT INFORMATION
  Report Type: Spontaneous
  Country: US (occurrence: US)
  Receive Date: 20170720
  Receipt Date: 20170720
  Transmission Date: 20171127
  Serious: Yes (Hospitalization)
  Sender: FDA-Public Use
  Company Number: US-PFIZER INC-2017311697

PATIENT
  Age: 53 Year
  Sex: Male
  Weight: 95.25 kg

DRUGS (7)
  1. LYRICA [Suspect]
     Active Substance: PREGABALIN
     Dosage: 600 MG, DAILY
  2. LYRICA [Suspect]
     Active Substance: PREGABALIN
     Indication: NEURALGIA
     Dosage: 100 MG, 2X/DAY
     Route: 048
     Dates: start: 2013
  3. INSULIN [Concomitant]
     Active Substance: INSULIN NOS
  4. HYDROCODONE/ACETAMINOPHEN [Concomitant]
     Active Substance: ACETAMINOPHEN\HYDROCODONE
     Indication: PAIN
     Dosage: [HYDROCODONE 7.5]/[ACETAMINOPHEN 3.23]
     Dates: start: 2013
  5. TOUJEO [Concomitant]
     Active Substance: INSULIN GLARGINE
     Indication: DIABETES MELLITUS
     Dosage: 64 UNITS
  6. NOVOLOG [Concomitant]
     Active Substance: INSULIN ASPART
     Indication: DIABETES MELLITUS
     Dosage: VARIES: 18, 25, OR 28 UNITS, INJECTION, WITH BREAKFAST, LUNCH, AND DINNER
     Dates: start: 2016
  7. TOUJEO [Concomitant]
     Active Substance: INSULIN GLARGINE
     Dosage: 50 UNITS, INJECTION WITH PEN, TWICE PER DAY
     Dates: start: 2016

REACTIONS (7)
  - Acute kidney injury [Unknown]
  - Peripheral swelling [Not Recovered/Not Resolved]
  - Anxiety [Unknown]
  - Withdrawal syndrome [Recovered/Resolved]
  - Pruritus [Unknown]
  - Road traffic accident [Unknown]
  - Blood pressure increased [Unknown]

NARRATIVE: CASE EVENT DATE: 2013
